FAERS Safety Report 7420599-0 (Version None)
Quarter: 2011Q2

REPORT INFORMATION
  Report Type: 
  Country: None (occurrence: None)
  Receive Date: 20110408
  Receipt Date: 20110328
  Transmission Date: 20111010
  Serious: Yes (Hospitalization)
  Sender: FDA-Public Use
  Company Number: TIR-00450

PATIENT
  Age: 95 Year
  Sex: Female

DRUGS (2)
  1. LEVOTHYROXINE SODIUM [Suspect]
     Dosage: 75 ?G ORAL
     Route: 048
  2. TARDYFERON /GFR/ (FERROUS SULFATE) [Suspect]
     Dosage: 80 MG ORAL
     Route: 048

REACTIONS (4)
  - BLOOD THYROID STIMULATING HORMONE INCREASED [None]
  - MICROCYTIC ANAEMIA [None]
  - DRUG INTERACTION [None]
  - HYPOTHYROIDISM [None]
